FAERS Safety Report 25617603 (Version 3)
Quarter: 2025Q3

REPORT INFORMATION
  Report Type: Spontaneous
  Country: CN (occurrence: CN)
  Receive Date: 20250729
  Receipt Date: 20250901
  Transmission Date: 20251020
  Serious: Yes (Hospitalization, Other)
  Sender: SANOFI AVENTIS
  Company Number: CN-SA-2025SA213037

PATIENT
  Age: 1 Year

DRUGS (1)
  1. DUPIXENT [Suspect]
     Active Substance: DUPILUMAB
     Indication: Dermatitis atopic
     Dosage: 200 MG, QOW
     Dates: start: 20250610, end: 202507

REACTIONS (7)
  - Pneumonia [Unknown]
  - Haemoptysis [Unknown]
  - Body temperature increased [Unknown]
  - Hand-foot-and-mouth disease [Recovered/Resolved]
  - Rash vesicular [Unknown]
  - Nasopharyngitis [Unknown]
  - Inappropriate schedule of product administration [Unknown]

NARRATIVE: CASE EVENT DATE: 20250610
